FAERS Safety Report 4666797-0 (Version None)
Quarter: 2005Q2

REPORT INFORMATION
  Report Type: 
  Country: None (occurrence: None)
  Receive Date: 20050519
  Receipt Date: 20040820
  Transmission Date: 20051028
  Serious: Yes (Life-Threatening, Hospitalization, Disabling, Other)
  Sender: FDA-Public Use
  Company Number: ES-MERCK-0408ESP00013M

PATIENT
  Age: 30 Year
  Sex: Female
  Weight: 54 kg

DRUGS (3)
  1. MAXALT [Suspect]
     Indication: MIGRAINE
     Route: 048
     Dates: start: 20040809, end: 20040809
  2. MAXALT [Suspect]
     Route: 048
     Dates: start: 20040813, end: 20040813
  3. FOSFOMYCIN TROMETHAMINE [Concomitant]
     Indication: URINARY TRACT INFECTION
     Route: 048
     Dates: start: 20040818, end: 20040819

REACTIONS (7)
  - ABORTION THREATENED [None]
  - AMNIOTIC CAVITY DISORDER [None]
  - DRUG EXPOSURE DURING PREGNANCY [None]
  - LABOUR INDUCTION [None]
  - PRE-ECLAMPSIA [None]
  - PROCEDURAL COMPLICATION [None]
  - THREATENED LABOUR [None]
